FAERS Safety Report 7394504-X (Version None)
Quarter: 2011Q2

REPORT INFORMATION
  Report Type: 
  Country: None (occurrence: None)
  Receive Date: 20110405
  Receipt Date: 20110324
  Transmission Date: 20111010
  Serious: Yes (Hospitalization, Other)
  Sender: FDA-Public Use
  Company Number: PHHY2010BR73743

PATIENT
  Sex: Male

DRUGS (6)
  1. DECADRON [Concomitant]
     Indication: PAIN
     Dosage: 3 TABLETS DAILY
     Dates: start: 20100801
  2. TRAMAL [Concomitant]
     Indication: PAIN
     Dosage: 3 TABLETS DAILY
     Route: 048
     Dates: start: 20100801
  3. FORASEQ [Suspect]
     Indication: CHRONIC OBSTRUCTIVE PULMONARY DISEASE
     Dosage: 1 DF, BID
  4. FLUOXETINE [Concomitant]
     Indication: PAIN
     Dosage: 1 TABLET DAILY
     Dates: start: 20100801
  5. BROMOPRIDE [Concomitant]
     Indication: MULTIPLE MYELOMA
     Dosage: 3 TABLETS DAILY
     Route: 048
     Dates: start: 20101001
  6. CLONAZEPAM [Concomitant]
     Indication: PAIN
     Dosage: 1 TABLET DAILY
     Dates: start: 20100801

REACTIONS (2)
  - MULTIPLE MYELOMA [None]
  - PAIN [None]
